FAERS Safety Report 8445680-9 (Version None)
Quarter: 2012Q2

REPORT INFORMATION
  Report Type: 
  Country: None (occurrence: None)
  Receive Date: 20120618
  Receipt Date: 20111213
  Transmission Date: 20120825
  Serious: Yes (Other)
  Sender: FDA-Public Use
  Company Number: BR-BAYER-2011-117381

PATIENT
  Age: 33 Year
  Sex: Female
  Weight: 60 kg

DRUGS (1)
  1. AVELOX [Suspect]
     Indication: PHARYNGITIS
     Dosage: 400 MG, QD
     Dates: start: 20111203, end: 20111204

REACTIONS (10)
  - HYPERHIDROSIS [None]
  - SYNCOPE [None]
  - SOMNOLENCE [None]
  - MALAISE [None]
  - CHILLS [None]
  - DIZZINESS [None]
  - DIARRHOEA [None]
  - BALANCE DISORDER [None]
  - VOMITING [None]
  - ABDOMINAL PAIN UPPER [None]
